FAERS Safety Report 9344521 (Version 2)
Quarter: 2013Q3

REPORT INFORMATION
  Report Type: Report from Study
  Country: US (occurrence: US)
  Receive Date: 20130612
  Receipt Date: 20130708
  Transmission Date: 20140515
  Serious: Yes (Other)
  Sender: FDA-Public Use
  Company Number: US-ELI_LILLY_AND_COMPANY-US201306001638

PATIENT
  Sex: Female

DRUGS (1)
  1. TERIPARATIDE [Suspect]
     Indication: OSTEOPOROSIS
     Dosage: UNK UNK, QD
     Dates: start: 201208, end: 201305

REACTIONS (13)
  - Loss of consciousness [Unknown]
  - Heart rate increased [Unknown]
  - Anxiety [Unknown]
  - Muscle tightness [Unknown]
  - Paraesthesia [Unknown]
  - Tension [Unknown]
  - Thinking abnormal [Recovered/Resolved]
  - Gait disturbance [Unknown]
  - Amnesia [Unknown]
  - Fall [Unknown]
  - Contusion [Unknown]
  - Laceration [Unknown]
  - Drug prescribing error [Unknown]
